FAERS Safety Report 21155151 (Version 1)
Quarter: 2022Q3

REPORT INFORMATION
  Report Type: Spontaneous
  Country: GB (occurrence: GB)
  Receive Date: 20220801
  Receipt Date: 20220801
  Transmission Date: 20221027
  Serious: Yes (Other)
  Sender: FDA-Public Use
  Company Number: None

PATIENT
  Age: 43 Year
  Sex: Female

DRUGS (2)
  1. PREGABALIN [Suspect]
     Active Substance: PREGABALIN
     Indication: Anxiety
     Dosage: 75 MILLIGRAM, BID (ORAL UNCOATED TABLET, ONLY TOOK ONE)
     Route: 048
     Dates: start: 20220527
  2. CARVEDILOL [Concomitant]
     Active Substance: CARVEDILOL
     Indication: Heart rate
     Dosage: UNK
     Route: 065
     Dates: start: 20220521

REACTIONS (1)
  - Hypopnoea [Recovering/Resolving]

NARRATIVE: CASE EVENT DATE: 20220527
